FAERS Safety Report 7064360-8 (Version None)
Quarter: 2010Q4

REPORT INFORMATION
  Report Type: 
  Country: None (occurrence: None)
  Receive Date: 20101027
  Receipt Date: 20101020
  Transmission Date: 20110411
  Serious: Yes (Other)
  Sender: FDA-Public Use
  Company Number: AU-SANOFI-AVENTIS-2010SA045643

PATIENT
  Age: 48 Year
  Sex: Female
  Weight: 135 kg

DRUGS (3)
  1. LANTUS [Suspect]
     Route: 058
     Dates: start: 20090601
  2. ASPRO /NET/ [Concomitant]
  3. BUSCOPAN [Concomitant]

REACTIONS (3)
  - CUSHING'S SYNDROME [None]
  - INJECTION SITE HAEMATOMA [None]
  - INJECTION SITE PAIN [None]
